FAERS Safety Report 12959623 (Version 1)
Quarter: 2016Q4

REPORT INFORMATION
  Report Type: Spontaneous
  Country: US (occurrence: US)
  Receive Date: 20161118
  Receipt Date: 20161118
  Transmission Date: 20170207
  Serious: Yes (Hospitalization)
  Sender: FDA-Public Use
  Company Number: None

PATIENT
  Age: 7 Year
  Sex: Male
  Weight: 21.4 kg

DRUGS (1)
  1. PAROXETINE. [Suspect]
     Active Substance: PAROXETINE
     Indication: ANXIETY
     Route: 048

REACTIONS (6)
  - Unresponsive to stimuli [None]
  - Nystagmus [None]
  - Movement disorder [None]
  - Dyskinesia [None]
  - Tremor [None]
  - Balance disorder [None]

NARRATIVE: CASE EVENT DATE: 20161103
